FAERS Safety Report 12093658 (Version 2)
Quarter: 2016Q2

REPORT INFORMATION
  Report Type: Spontaneous
  Country: None (occurrence: AE)
  Receive Date: 20160219
  Receipt Date: 20160505
  Transmission Date: 20160815
  Serious: Yes (Disabling)
  Sender: FDA-Public Use
  Company Number: AE-SEPTODONT-201603218

PATIENT
  Age: 41 Year
  Sex: Female

DRUGS (1)
  1. SEPTANEST SP [Suspect]
     Active Substance: ARTICAINE HYDROCHLORIDE\EPINEPHRINE BITARTRATE
     Indication: LOCAL ANAESTHESIA
     Route: 004
     Dates: start: 20150303

REACTIONS (8)
  - Paraesthesia [Not Recovered/Not Resolved]
  - Speech disorder [Not Recovered/Not Resolved]
  - Paraesthesia oral [Not Recovered/Not Resolved]
  - Ageusia [Not Recovered/Not Resolved]
  - Dysgeusia [Not Recovered/Not Resolved]
  - Saliva altered [Not Recovered/Not Resolved]
  - Paraesthesia oral [Recovered/Resolved]
  - Tongue paralysis [Not Recovered/Not Resolved]

NARRATIVE: CASE EVENT DATE: 20150303
